FAERS Safety Report 25633723 (Version 2)
Quarter: 2025Q3

REPORT INFORMATION
  Report Type: Report from Study
  Country: MX (occurrence: MX)
  Receive Date: 20250801
  Receipt Date: 20250916
  Transmission Date: 20251021
  Serious: Yes (Other)
  Sender: UCB
  Company Number: MX-UCBSA-2025046892

PATIENT
  Sex: Male
  Weight: 79 kg

DRUGS (1)
  1. BIMZELX [Suspect]
     Active Substance: BIMEKIZUMAB-BKZX
     Indication: Psoriasis
     Dosage: 320 MILLIGRAM, EV 4 WEEKS
     Route: 058
     Dates: start: 20240530, end: 20250520

REACTIONS (3)
  - Decreased immune responsiveness [Unknown]
  - Illness [Unknown]
  - Impaired quality of life [Unknown]
